FAERS Safety Report 5000795-2 (Version None)
Quarter: 2006Q2

REPORT INFORMATION
  Report Type: 
  Country: None (occurrence: None)
  Receive Date: 20060512
  Receipt Date: 20051001
  Transmission Date: 20061013
  Serious: Yes (Hospitalization, Other)
  Sender: FDA-Public Use
  Company Number: US-MERCK-0510USA01836

PATIENT
  Age: 64 Year
  Sex: Female
  Weight: 75 kg

DRUGS (8)
  1. VIOXX [Suspect]
     Indication: SPONDYLOLISTHESIS
     Route: 048
     Dates: start: 20010919, end: 20040301
  2. VIOXX [Suspect]
     Route: 048
     Dates: start: 20010919, end: 20040301
  3. VIOXX [Suspect]
     Indication: BACK PAIN
     Route: 048
     Dates: start: 20010919, end: 20040301
  4. VIOXX [Suspect]
     Route: 048
     Dates: start: 20010919, end: 20040301
  5. DIFLUNISAL [Concomitant]
     Route: 065
  6. SKELAXIN [Concomitant]
     Route: 065
  7. SKELAXIN [Concomitant]
     Route: 065
     Dates: start: 20010901
  8. DARVOCET-N 100 [Concomitant]
     Route: 065
     Dates: start: 20010919

REACTIONS (3)
  - BACK DISORDER [None]
  - CEREBROVASCULAR ACCIDENT [None]
  - RETINAL VEIN OCCLUSION [None]
